FAERS Safety Report 20853893 (Version 2)
Quarter: 2022Q2

REPORT INFORMATION
  Report Type: Spontaneous
  Country: CN (occurrence: None)
  Receive Date: 20220520
  Receipt Date: 20220601
  Transmission Date: 20220721
  Serious: Yes (Hospitalization, Other)
  Sender: FDA-Public Use
  Company Number: 2022A178243

PATIENT
  Age: 56 Year
  Sex: Male
  Weight: 51 kg

DRUGS (1)
  1. IMFINZI [Suspect]
     Active Substance: DURVALUMAB
     Indication: Non-small cell lung cancer stage III
     Dosage: 500MG PER PEROID
     Route: 058
     Dates: start: 20210713, end: 20210803

REACTIONS (4)
  - Lung opacity [Unknown]
  - Pulmonary mass [Unknown]
  - Pleural effusion [Recovering/Resolving]
  - Pneumonitis [Not Recovered/Not Resolved]

NARRATIVE: CASE EVENT DATE: 20220325
